FAERS Safety Report 7900943-8 (Version None)
Quarter: 2011Q4

REPORT INFORMATION
  Report Type: 
  Country: None (occurrence: None)
  Receive Date: 20111108
  Receipt Date: 20111025
  Transmission Date: 20120403
  Serious: Yes (Hospitalization)
  Sender: FDA-Public Use
  Company Number: FR-ELI_LILLY_AND_COMPANY-FR200808004253

PATIENT
  Age: 63 Year
  Sex: Female
  Weight: 68 kg

DRUGS (10)
  1. TENOLOL [Concomitant]
     Dosage: UNK, UNKNOWN
     Route: 065
  2. DIAMICRON [Concomitant]
     Indication: DIABETES MELLITUS
     Dosage: 30, 4/D
     Route: 048
     Dates: start: 20060101, end: 20080719
  3. FUROSEMIDE [Concomitant]
     Dosage: UNK, UNKNOWN
     Route: 065
  4. IRBESARTAN AND HYDROCHLOROTHIAZIDE [Concomitant]
     Indication: HYPERTENSION
     Dosage: 300/25
     Route: 048
     Dates: start: 20060101, end: 20080719
  5. EZETIMIBE [Concomitant]
     Indication: HYPERCHOLESTEROLAEMIA
     Dosage: 10/40, DAILY (1/D)
     Route: 048
     Dates: start: 20070101, end: 20080719
  6. ASPIRIN [Concomitant]
     Dosage: 75, UNKNOWN
     Route: 048
     Dates: start: 20070101, end: 20080719
  7. AVANDIA [Concomitant]
     Indication: DIABETES MELLITUS
     Dosage: 8, DAILY (1/D)
     Route: 048
     Dates: start: 20060101, end: 20080719
  8. EVISTA [Concomitant]
     Indication: OSTEOPOROSIS
     Dosage: 60, DAILY (1/D)
     Route: 048
     Dates: start: 20060101, end: 20080719
  9. CYMBALTA [Suspect]
     Indication: DEPRESSION
     Dosage: 60 MG, DAILY (1/D)
     Route: 048
     Dates: start: 20080715, end: 20080719
  10. ATENOLOL [Concomitant]
     Indication: HYPERTENSION
     Dosage: 100, DAILY (1/D)
     Route: 048
     Dates: start: 20060101, end: 20080719

REACTIONS (6)
  - GASTRIC ULCER [None]
  - MELAENA [None]
  - GLYCOSYLATED HAEMOGLOBIN INCREASED [None]
  - DUODENAL ULCER [None]
  - ANAEMIA [None]
  - HYPOTENSION [None]
